FAERS Safety Report 4680373-5 (Version None)
Quarter: 2005Q2

REPORT INFORMATION
  Report Type: 
  Country: None (occurrence: None)
  Receive Date: 20050601
  Receipt Date: 20050517
  Transmission Date: 20051028
  Serious: Yes (Hospitalization)
  Sender: FDA-Public Use
  Company Number: 230008M05DEU

PATIENT
  Age: 51 Year
  Sex: Female

DRUGS (7)
  1. REBIF [Suspect]
     Indication: MULTIPLE SCLEROSIS
     Dosage: 44 MCG, 3 IN 1 WEEKS, SUBCUTANEOUS
     Route: 058
     Dates: start: 20040801
  2. CARBAMAZEPINE [Concomitant]
  3. MOCLOBEMIDE [Concomitant]
  4. SOTALOL HCL [Concomitant]
  5. MAGNESIUM [Concomitant]
  6. ENOXAPARIN SODIUM [Concomitant]
  7. METAMIZOE SODIUM [Concomitant]

REACTIONS (6)
  - ABDOMINAL ABSCESS [None]
  - CELLULITIS [None]
  - FASCIITIS [None]
  - INJECTION SITE ABSCESS [None]
  - NECROTISING PANNICULITIS [None]
  - STAPHYLOCOCCAL ABSCESS [None]
